FAERS Safety Report 9361609 (Version 9)
Quarter: 2018Q1

REPORT INFORMATION
  Report Type: Report from Study
  Country: US (occurrence: US)
  Receive Date: 20130621
  Receipt Date: 20180214
  Transmission Date: 20180509
  Serious: Yes (Hospitalization, Other)
  Sender: FDA-Public Use
  Company Number: US-SANOFI-AVENTIS-2013SA040477

PATIENT
  Age: 44 Year
  Sex: Female
  Weight: 84.82 kg

DRUGS (13)
  1. LISINOPRIL. [Concomitant]
     Active Substance: LISINOPRIL
     Route: 065
  2. AUBAGIO [Suspect]
     Active Substance: TERIFLUNOMIDE
     Indication: MULTIPLE SCLEROSIS
     Route: 048
     Dates: start: 20170220
  3. ASA [Concomitant]
     Active Substance: ASPIRIN
     Route: 065
  4. NEURONTIN [Concomitant]
     Active Substance: GABAPENTIN
     Route: 065
  5. AMPYRA [Concomitant]
     Active Substance: DALFAMPRIDINE
     Route: 065
  6. HYDROCHLOROTHIAZIDE. [Concomitant]
     Active Substance: HYDROCHLOROTHIAZIDE
  7. XANAX [Concomitant]
     Active Substance: ALPRAZOLAM
     Dosage: BID PRN
     Route: 065
  8. PREDNISONE. [Concomitant]
     Active Substance: PREDNISONE
  9. VITAMIN D [Concomitant]
     Active Substance: CHOLECALCIFEROL
     Route: 065
  10. ATENOLOL. [Concomitant]
     Active Substance: ATENOLOL
     Route: 065
  11. VESICARE [Concomitant]
     Active Substance: SOLIFENACIN SUCCINATE
     Route: 065
  12. AUBAGIO [Suspect]
     Active Substance: TERIFLUNOMIDE
     Indication: MULTIPLE SCLEROSIS
     Route: 048
     Dates: start: 20130103, end: 20130111
  13. AUBAGIO [Suspect]
     Active Substance: TERIFLUNOMIDE
     Indication: MULTIPLE SCLEROSIS
     Route: 048
     Dates: start: 20151001

REACTIONS (51)
  - Blood cholesterol increased [Unknown]
  - Photophobia [Unknown]
  - Peripheral swelling [Unknown]
  - Abdominal distension [Recovered/Resolved]
  - Abdominal pain upper [Recovered/Resolved]
  - Diabetes mellitus [Unknown]
  - Red blood cell count increased [Unknown]
  - Insomnia [Recovered/Resolved]
  - Urinary incontinence [Not Recovered/Not Resolved]
  - Weight increased [Recovered/Resolved]
  - Fall [Unknown]
  - Eye swelling [Not Recovered/Not Resolved]
  - Contusion [Not Recovered/Not Resolved]
  - Muscular weakness [Not Recovered/Not Resolved]
  - Balance disorder [Recovered/Resolved]
  - Vision blurred [Not Recovered/Not Resolved]
  - Nervousness [Recovered/Resolved]
  - Alopecia [Recovered/Resolved]
  - Condition aggravated [Recovered/Resolved]
  - Uterine disorder [Unknown]
  - Ligament sprain [Unknown]
  - Grip strength decreased [Not Recovered/Not Resolved]
  - Drug dose omission [Unknown]
  - Mydriasis [Not Recovered/Not Resolved]
  - Stress [Recovered/Resolved]
  - Malaise [Recovered/Resolved]
  - Multiple sclerosis [Unknown]
  - Hypoaesthesia oral [Not Recovered/Not Resolved]
  - Eye disorder [Not Recovered/Not Resolved]
  - Nervous system disorder [Unknown]
  - Asthenia [Unknown]
  - Paraesthesia [Recovered/Resolved]
  - Urinary retention [Unknown]
  - White blood cell count increased [Unknown]
  - Limb discomfort [Not Recovered/Not Resolved]
  - Hot flush [Unknown]
  - Rash [Recovered/Resolved]
  - Pain [Recovered/Resolved]
  - Eye paraesthesia [Recovered/Resolved]
  - Headache [Recovered/Resolved]
  - Memory impairment [Not Recovered/Not Resolved]
  - Laboratory test abnormal [Not Recovered/Not Resolved]
  - Gait disturbance [Unknown]
  - Drooling [Unknown]
  - Limb discomfort [Recovered/Resolved]
  - Arthralgia [Recovered/Resolved]
  - Sensory loss [Not Recovered/Not Resolved]
  - Hyperhidrosis [Unknown]
  - Feeling hot [Unknown]
  - Muscular weakness [Recovered/Resolved]
  - Abdominal discomfort [Recovered/Resolved]

NARRATIVE: CASE EVENT DATE: 20130107
